FAERS Safety Report 4761434-9 (Version None)
Quarter: 2005Q3

REPORT INFORMATION
  Report Type: 
  Country: None (occurrence: None)
  Receive Date: 20050901
  Receipt Date: 20050901
  Transmission Date: 20060218
  Serious: Yes (Hospitalization)
  Sender: FDA-Public Use
  Company Number: None

PATIENT
  Age: 52 Year
  Sex: Female
  Weight: 89.1 kg

DRUGS (9)
  1. GEMCITABINE [Suspect]
     Indication: NON-SMALL CELL LUNG CANCER
     Dosage: 1500MG/M2   QOW   IV
     Route: 042
     Dates: start: 20050610, end: 20050722
  2. PEMETREXED [Suspect]
     Indication: NON-SMALL CELL LUNG CANCER
     Dosage: 500MG/M2   QOW   IV
     Route: 042
     Dates: start: 20050610, end: 20050722
  3. CLONIDINE HCL [Concomitant]
  4. EQUATE [Concomitant]
  5. HYDROCODONE BITARTRATE [Concomitant]
  6. LORAZEPAM [Concomitant]
  7. LOTREL [Concomitant]
  8. M.V.I. [Concomitant]
  9. TYLENOL SINUS [Concomitant]

REACTIONS (4)
  - CYTOMEGALOVIRUS COLITIS [None]
  - DIARRHOEA HAEMORRHAGIC [None]
  - ILEUS [None]
  - RECTAL HAEMORRHAGE [None]
